FAERS Safety Report 19122305 (Version 1)
Quarter: 2021Q2

REPORT INFORMATION
  Report Type: Report from Study
  Country: DE (occurrence: DE)
  Receive Date: 20210412
  Receipt Date: 20210412
  Transmission Date: 20210717
  Serious: Yes (Other)
  Sender: FDA-Public Use
  Company Number: DE-BIOGEN-2021BI00999137

PATIENT
  Age: 31 Year
  Sex: Female

DRUGS (1)
  1. PLEGRIDY [Suspect]
     Active Substance: PEGINTERFERON BETA-1A
     Indication: PRODUCT USED FOR UNKNOWN INDICATION
     Route: 058
     Dates: start: 20210201

REACTIONS (3)
  - Uterine cyst [Recovered/Resolved]
  - White blood cell count decreased [Not Recovered/Not Resolved]
  - Cyst rupture [Recovered/Resolved]

NARRATIVE: CASE EVENT DATE: 20210401
